FAERS Safety Report 23448744 (Version 1)
Quarter: 2024Q1

REPORT INFORMATION
  Report Type: Spontaneous
  Country: None (occurrence: JP)
  Receive Date: 20240127
  Receipt Date: 20240127
  Transmission Date: 20240410
  Serious: Yes (Hospitalization, Other)
  Sender: FDA-Public Use
  Company Number: JP-Breckenridge Pharmaceutical, Inc.-2152151

PATIENT
  Age: 86 Year
  Sex: Male

DRUGS (3)
  1. BICALUTAMIDE [Suspect]
     Active Substance: BICALUTAMIDE
     Indication: Prostate cancer
     Route: 048
     Dates: start: 20230526, end: 20230606
  2. SENNOSIDES [Concomitant]
     Active Substance: SENNOSIDES
  3. DAYVIGO [Concomitant]
     Active Substance: LEMBOREXANT

REACTIONS (2)
  - Agranulocytosis [Unknown]
  - Febrile neutropenia [Unknown]
